FAERS Safety Report 5474888-X (Version None)
Quarter: 2007Q4

REPORT INFORMATION
  Report Type: 
  Country: None (occurrence: None)
  Receive Date: 20071002
  Receipt Date: 20070917
  Transmission Date: 20080405
  Serious: Yes (Hospitalization)
  Sender: FDA-Public Use
  Company Number: ES-GENENTECH-248515

PATIENT
  Age: 72 Year
  Sex: Female

DRUGS (2)
  1. HERCEPTIN [Suspect]
     Indication: BREAST CANCER METASTATIC
     Dosage: 260 MG/KG, UNK
     Route: 042
     Dates: start: 20060817, end: 20060825
  2. TAXOL [Suspect]
     Indication: BREAST CANCER METASTATIC
     Dosage: 132 MG, UNK
     Route: 042
     Dates: start: 20060817, end: 20060825

REACTIONS (1)
  - MUCOSAL INFLAMMATION [None]
